FAERS Safety Report 23158082 (Version 1)
Quarter: 2023Q4

REPORT INFORMATION
  Report Type: Spontaneous
  Country: US (occurrence: US)
  Receive Date: 20231108
  Receipt Date: 20231108
  Transmission Date: 20240109
  Serious: Yes (Hospitalization)
  Sender: FDA-Public Use
  Company Number: US-drreddys-LIT/USA/23/0182885

PATIENT
  Age: 42 Year
  Sex: Female

DRUGS (22)
  1. MORPHINE [Suspect]
     Active Substance: MORPHINE
     Indication: Pain
     Route: 048
  2. OXYCODONE [Suspect]
     Active Substance: OXYCODONE
     Indication: Pain
  3. GABAPENTIN [Suspect]
     Active Substance: GABAPENTIN
     Indication: Pain
     Route: 048
  4. GABAPENTIN [Suspect]
     Active Substance: GABAPENTIN
     Route: 048
  5. GABAPENTIN [Suspect]
     Active Substance: GABAPENTIN
     Route: 048
  6. GABAPENTIN [Suspect]
     Active Substance: GABAPENTIN
     Route: 048
  7. BACLOFEN [Suspect]
     Active Substance: BACLOFEN
     Indication: Pain
     Route: 048
  8. BACLOFEN [Suspect]
     Active Substance: BACLOFEN
     Route: 048
  9. METHADONE [Suspect]
     Active Substance: METHADONE HYDROCHLORIDE
     Indication: Pain
     Route: 048
  10. METHADONE [Suspect]
     Active Substance: METHADONE HYDROCHLORIDE
     Route: 048
  11. METHADONE [Suspect]
     Active Substance: METHADONE HYDROCHLORIDE
     Route: 048
  12. METHADONE [Suspect]
     Active Substance: METHADONE HYDROCHLORIDE
     Route: 048
  13. METHADONE [Suspect]
     Active Substance: METHADONE HYDROCHLORIDE
     Route: 048
  14. METHADONE [Suspect]
     Active Substance: METHADONE HYDROCHLORIDE
     Route: 042
  15. ACETAMINOPHEN [Suspect]
     Active Substance: ACETAMINOPHEN
     Indication: Pain
     Route: 048
  16. TYLENOL [Suspect]
     Active Substance: ACETAMINOPHEN
     Indication: Pain
     Route: 048
  17. BUPIVACAINE [Suspect]
     Active Substance: BUPIVACAINE
     Indication: Pain
  18. BUPIVACAINE [Suspect]
     Active Substance: BUPIVACAINE
     Route: 037
  19. HYDROMORPHONE [Suspect]
     Active Substance: HYDROMORPHONE
     Indication: Pain
  20. MORPHINE [Suspect]
     Active Substance: MORPHINE
     Indication: Pain
     Dosage: TOTAL MORPHINE DOSE WAS 492 MEQ, 530 MEQ, 380 MEQ, 314 MEQ, 204 MEQ, 6 MEQ, 42 MEQ, 24 MEQ
     Route: 048
  21. DOXORUBICIN [Concomitant]
     Active Substance: DOXORUBICIN
     Indication: Anticoagulant therapy
  22. ZINECARD [Concomitant]
     Active Substance: DEXRAZOXANE HYDROCHLORIDE
     Indication: Anticoagulant therapy

REACTIONS (6)
  - Small intestinal obstruction [Unknown]
  - Neoplasm [Unknown]
  - Depression [Unknown]
  - Lethargy [Unknown]
  - Swelling [Unknown]
  - Drug ineffective [Unknown]
